FAERS Safety Report 8431393-6 (Version None)
Quarter: 2012Q2

REPORT INFORMATION
  Report Type: 
  Country: None (occurrence: None)
  Receive Date: 20120605
  Receipt Date: 20120522
  Transmission Date: 20120825
  Serious: Yes (Death, Hospitalization, Other)
  Sender: FDA-Public Use
  Company Number: EU-2012-10156

PATIENT
  Sex: Female

DRUGS (4)
  1. CHEMOTHERAPY [Concomitant]
  2. RADIATION THERAPY [Concomitant]
  3. ANTIBIOTICS [Concomitant]
  4. SAMSCA [Suspect]
     Indication: HYPONATRAEMIA
     Route: 048

REACTIONS (12)
  - THROMBOCYTOPENIA [None]
  - LEUKOPENIA [None]
  - PYREXIA [None]
  - POST PROCEDURAL INFECTION [None]
  - BLOOD CORTISOL INCREASED [None]
  - ILEUS [None]
  - GENERAL PHYSICAL HEALTH DETERIORATION [None]
  - ESCHERICHIA INFECTION [None]
  - ECTOPIC ACTH SYNDROME [None]
  - ABDOMINAL PAIN [None]
  - CUSHING'S SYNDROME [None]
  - RESPIRATORY DISORDER [None]
